FAERS Safety Report 15975919 (Version 1)
Quarter: 2019Q1

REPORT INFORMATION
  Report Type: Spontaneous
  Country: CA (occurrence: CA)
  Receive Date: 20190218
  Receipt Date: 20190218
  Transmission Date: 20190418
  Serious: Yes (Death, Hospitalization)
  Sender: FDA-Public Use
  Company Number: PHHY2019CA036771

PATIENT
  Age: 67 Year
  Sex: Male

DRUGS (2)
  1. METHOTREXATE. [Suspect]
     Active Substance: METHOTREXATE
     Indication: RHEUMATOID ARTHRITIS
     Dosage: UNK
     Route: 065
  2. PREDNISONE. [Suspect]
     Active Substance: PREDNISONE
     Indication: RHEUMATOID ARTHRITIS
     Dosage: UNK
     Route: 065

REACTIONS (20)
  - Seizure [Fatal]
  - Nausea [Fatal]
  - Strongyloidiasis [Fatal]
  - Somnolence [Fatal]
  - Vomiting [Fatal]
  - Upper gastrointestinal haemorrhage [Unknown]
  - Stress ulcer [Unknown]
  - Decreased appetite [Fatal]
  - Abdominal pain [Fatal]
  - Bacteraemia [Unknown]
  - Headache [Fatal]
  - Body temperature increased [Fatal]
  - Nervous system disorder [Fatal]
  - Diarrhoea [Fatal]
  - Escherichia infection [Unknown]
  - Clostridium difficile infection [Unknown]
  - Confusional state [Fatal]
  - Weight decreased [Fatal]
  - Thrombosis [Unknown]
  - Depressed level of consciousness [Fatal]
